FAERS Safety Report 17692122 (Version 18)
Quarter: 2024Q1

REPORT INFORMATION
  Report Type: Spontaneous
  Country: US (occurrence: US)
  Receive Date: 20200422
  Receipt Date: 20240325
  Transmission Date: 20240410
  Serious: Yes (Other)
  Sender: FDA-Public Use
  Company Number: US-PFIZER INC-2019340317

PATIENT
  Sex: Female
  Weight: 93.44 kg

DRUGS (6)
  1. PREMARIN [Suspect]
     Active Substance: ESTROGENS, CONJUGATED
     Indication: Urinary tract infection
     Dosage: 1 G, 2X/WEEK
     Route: 067
  2. PREMARIN [Suspect]
     Active Substance: ESTROGENS, CONJUGATED
     Dosage: UNDER 1 GRAM, EVERY 4 DAYS
     Route: 067
  3. PREMARIN [Suspect]
     Active Substance: ESTROGENS, CONJUGATED
     Dosage: 2/3 GRAM/EVERY 4 DAYS AT NIGHT INTRAVAGINALLY
     Route: 067
  4. PREMARIN [Suspect]
     Active Substance: ESTROGENS, CONJUGATED
     Dosage: 0.5 G, EVERY 4 DAYS AT NIGHT INTRAVAGINALLY
     Route: 067
  5. PREMARIN [Suspect]
     Active Substance: ESTROGENS, CONJUGATED
     Dosage: 1.5 G, DAILY
  6. PREMARIN [Suspect]
     Active Substance: ESTROGENS, CONJUGATED
     Dosage: INSERT 1 GRAM EVERY OTHER DAY

REACTIONS (15)
  - Chronic obstructive pulmonary disease [Recovered/Resolved]
  - Cataract [Unknown]
  - Off label use [Unknown]
  - Drug effective for unapproved indication [Unknown]
  - Intentional product misuse [Not Recovered/Not Resolved]
  - Panic reaction [Unknown]
  - Dysphonia [Unknown]
  - Illness [Unknown]
  - Bronchitis [Recovered/Resolved]
  - Aphonia [Unknown]
  - Throat irritation [Unknown]
  - Oropharyngeal discomfort [Recovering/Resolving]
  - Candida infection [Unknown]
  - Hypersensitivity [Unknown]
  - Feeling abnormal [Unknown]
